FAERS Safety Report 7328679-5 (Version None)
Quarter: 2011Q1

REPORT INFORMATION
  Report Type: 
  Country: None (occurrence: None)
  Receive Date: 20110303
  Receipt Date: 20110113
  Transmission Date: 20110831
  Serious: Yes (Hospitalization, Other)
  Sender: FDA-Public Use
  Company Number: JP-ROCHE-707545

PATIENT
  Age: 13 Year
  Sex: Female

DRUGS (17)
  1. ACICLOVIR [Suspect]
     Indication: SMALL INTESTINE TRANSPLANT
     Dosage: DOSE AND FREQUENCY NOT PROVIDED. DRUG: VICCLOX.
     Route: 048
     Dates: start: 20091130
  2. PREDNISOLONE [Suspect]
     Dosage: DECREASED; TAPERED EACH BY 5 MG AT THE INTERVAL OF 3 DAYS.
     Route: 048
     Dates: start: 20100525
  3. BAKTAR [Suspect]
     Dosage: DAILY DOSE: 0.5 TABLET. DOSAGE REDUCED.
     Route: 048
     Dates: start: 20100513, end: 20100519
  4. PREDNISOLONE [Suspect]
     Route: 048
     Dates: start: 20091127, end: 20100513
  5. PROGRAF [Suspect]
     Dosage: REDUCED.
     Route: 048
  6. NEUPOGEN [Suspect]
     Indication: SMALL INTESTINE TRANSPLANT
     Dosage: FORM AND FREQUENCY NOT PROVIDED.
     Route: 042
     Dates: start: 20100519, end: 20100522
  7. MYCOSYST [Suspect]
     Route: 048
     Dates: start: 20091127
  8. VALGANCICLOVIR [Suspect]
     Indication: SMALL INTESTINE TRANSPLANT
     Dosage: DOSE FORM NOT REPORTED.
     Route: 048
     Dates: start: 20091127, end: 20100512
  9. BIOFERMIN R [Concomitant]
     Dosage: FREQUENCY WAS NOT REPORTED.
     Route: 048
     Dates: start: 20091127
  10. TAKEPRON [Suspect]
     Route: 048
     Dates: start: 20091127
  11. PREDNISOLONE [Suspect]
     Route: 048
     Dates: start: 20100514, end: 20100518
  12. PROGRAF [Suspect]
     Dosage: REDUCED.
     Route: 048
     Dates: start: 20100513
  13. VALGANCICLOVIR [Suspect]
     Dosage: DOSAGE REDUCED.
     Route: 048
     Dates: start: 20100513, end: 20100519
  14. PREDNISOLONE [Suspect]
     Dosage: INCREASED.
     Route: 048
     Dates: end: 20100524
  15. ANGINAL [Concomitant]
     Route: 048
     Dates: start: 20091127, end: 20100513
  16. BAKTAR [Suspect]
     Indication: SMALL INTESTINE TRANSPLANT
     Dosage: DAILY DOSE: 1.25 TABLET
     Route: 048
     Dates: start: 20091127, end: 20100512
  17. PROGRAF [Suspect]
     Route: 048
     Dates: start: 20091127, end: 20100512

REACTIONS (2)
  - WHITE BLOOD CELL COUNT DECREASED [None]
  - NEUTROPHIL COUNT DECREASED [None]
